FAERS Safety Report 6389244-X (Version None)
Quarter: 2009Q4

REPORT INFORMATION
  Report Type: 
  Country: None (occurrence: None)
  Receive Date: 20091006
  Receipt Date: 20090925
  Transmission Date: 20100525
  Serious: Yes (Hospitalization, Other)
  Sender: FDA-Public Use
  Company Number: PHHY2009FR41306

PATIENT
  Age: 60 Year
  Sex: Female

DRUGS (1)
  1. TEGRETOL [Suspect]
     Indication: EPILEPSY
     Dosage: UNK
     Route: 048
     Dates: end: 20090412

REACTIONS (10)
  - ABNORMAL BEHAVIOUR [None]
  - CONVULSION [None]
  - EATING DISORDER [None]
  - HEAD INJURY [None]
  - HYPOKALAEMIA [None]
  - HYPONATRAEMIA [None]
  - MALAISE [None]
  - TONIC CLONIC MOVEMENTS [None]
  - UNRESPONSIVE TO STIMULI [None]
  - WEIGHT DECREASED [None]
